FAERS Safety Report 8536636-6 (Version None)
Quarter: 2012Q3

REPORT INFORMATION
  Report Type: 
  Country: None (occurrence: None)
  Receive Date: 20120725
  Receipt Date: 20120712
  Transmission Date: 20120928
  Serious: Yes (Disabling)
  Sender: FDA-Public Use
  Company Number: JP-PFIZER INC-2012138362

PATIENT
  Age: 85 Year
  Sex: Female

DRUGS (2)
  1. LYRICA [Concomitant]
     Dosage: UNK
     Route: 048
  2. CELEBREX [Suspect]
     Indication: BACK PAIN
     Dosage: 200 MG,DAILY
     Route: 048
     Dates: start: 20120521, end: 20120528

REACTIONS (1)
  - DRUG ERUPTION [None]
